FAERS Safety Report 6094006-7 (Version None)
Quarter: 2009Q1

REPORT INFORMATION
  Report Type: 
  Country: None (occurrence: None)
  Receive Date: 20090226
  Receipt Date: 20090218
  Transmission Date: 20090719
  Serious: Yes (Other)
  Sender: FDA-Public Use
  Company Number: B0561410A

PATIENT
  Age: 2 Year

DRUGS (1)
  1. AMOXICILLIN [Suspect]

REACTIONS (2)
  - ANGIOEDEMA [None]
  - URTICARIA [None]
